FAERS Safety Report 18853796 (Version 1)
Quarter: 2021Q1

REPORT INFORMATION
  Report Type: Spontaneous
  Country: US (occurrence: US)
  Receive Date: 20210205
  Receipt Date: 20210205
  Transmission Date: 20210420
  Serious: Yes (Other)
  Sender: FDA-Public Use
  Company Number: US-PFIZER INC-2021076635

PATIENT
  Age: 67 Year
  Sex: Female

DRUGS (2)
  1. XELJANZ [Suspect]
     Active Substance: TOFACITINIB CITRATE
     Dosage: 5 MG, 2X/DAY
  2. MODERNA COVID?19 VACCINE [Suspect]
     Active Substance: CX-024414
     Dosage: UNK

REACTIONS (5)
  - White blood cell count decreased [Unknown]
  - Pyrexia [Unknown]
  - C-reactive protein increased [Unknown]
  - Seizure [Unknown]
  - Illness [Unknown]
